FAERS Safety Report 23576597 (Version 1)
Quarter: 2024Q1

REPORT INFORMATION
  Report Type: Spontaneous
  Country: DE (occurrence: DE)
  Receive Date: 20240228
  Receipt Date: 20240228
  Transmission Date: 20240409
  Serious: Yes (Hospitalization)
  Sender: FDA-Public Use
  Company Number: DE-DCGMA-24202711

PATIENT
  Age: 87 Year
  Sex: Female
  Weight: 65 kg

DRUGS (2)
  1. ETORICOXIB [Suspect]
     Active Substance: ETORICOXIB
     Indication: Femoral neck fracture
     Route: 048
     Dates: start: 20240101
  2. COTRIM [Suspect]
     Active Substance: SULFAMETHOXAZOLE\TRIMETHOPRIM
     Indication: Urinary tract infection
     Route: 048
     Dates: start: 20240101

REACTIONS (1)
  - Pancytopenia [Recovered/Resolved]

NARRATIVE: CASE EVENT DATE: 20240101
